FAERS Safety Report 8829256 (Version 3)
Quarter: 2013Q1

REPORT INFORMATION
  Report Type: Spontaneous
  Country: DK (occurrence: DK)
  Receive Date: 20121008
  Receipt Date: 20130121
  Transmission Date: 20140127
  Serious: Yes (Other)
  Sender: FDA-Public Use
  Company Number: PHHY2012DK087395

PATIENT
  Age: 19 Year
  Sex: Female
  Weight: 42 kg

DRUGS (4)
  1. RISPERANNE [Suspect]
     Indication: MENTAL DISORDER
     Dosage: 1 MG, QD
     Route: 048
     Dates: start: 201112
  2. MIRTAZAPIN KRKA [Interacting]
     Indication: MENTAL DISORDER
     Dosage: 45 MG, QD IN THE EVENING
     Route: 048
     Dates: start: 2011
  3. MIRTAZAPIN KRKA [Interacting]
     Dosage: 30 MG, DAILY
     Route: 048
     Dates: start: 201209
  4. SERTRALINE [Concomitant]
     Indication: OBSESSIVE-COMPULSIVE DISORDER
     Dosage: 200 MG, QD
     Route: 048
     Dates: start: 2009

REACTIONS (8)
  - Swollen tongue [Not Recovered/Not Resolved]
  - Slow speech [Not Recovered/Not Resolved]
  - Hypotension [Not Recovered/Not Resolved]
  - Syncope [Not Recovered/Not Resolved]
  - Arrhythmia [Not Recovered/Not Resolved]
  - Heart rate decreased [Unknown]
  - Drug interaction [Unknown]
  - Wrong drug administered [Unknown]
